FAERS Safety Report 19978694 (Version 1)
Quarter: 2021Q4

REPORT INFORMATION
  Report Type: Spontaneous
  Country: US (occurrence: US)
  Receive Date: 20211021
  Receipt Date: 20211021
  Transmission Date: 20220303
  Serious: No
  Sender: FDA-Public Use
  Company Number: None

PATIENT
  Age: 72 Year
  Sex: Male

DRUGS (1)
  1. ENBREL [Suspect]
     Active Substance: ETANERCEPT
     Dosage: ?OTHER DOSE:50;?OTHER FREQUENCY:OTHER;
     Route: 058
     Dates: start: 202110

REACTIONS (3)
  - Rash erythematous [None]
  - Pain [None]
  - Sleep disorder [None]

NARRATIVE: CASE EVENT DATE: 20211021
